FAERS Safety Report 18627973 (Version 1)
Quarter: 2020Q4

REPORT INFORMATION
  Report Type: Spontaneous
  Country: GB (occurrence: GB)
  Receive Date: 20201217
  Receipt Date: 20201217
  Transmission Date: 20210114
  Serious: Yes (Death, Hospitalization, Other)
  Sender: FDA-Public Use
  Company Number: GB-MYLANLABS-2020M1102103

PATIENT
  Age: 65 Year
  Sex: Female

DRUGS (5)
  1. TAMOXIFEN [Concomitant]
     Active Substance: TAMOXIFEN
     Indication: BREAST CANCER
     Dosage: 40 MG, DAILY (FOR MORE THAN A YEAR)
  2. CIPROFLOXACIN. [Suspect]
     Active Substance: CIPROFLOXACIN
     Indication: LOWER RESPIRATORY TRACT INFECTION
     Dosage: 250 MG, 2X/DAY
  3. UNIPHYLLIN CONTINUS [Interacting]
     Active Substance: THEOPHYLLINE ANHYDROUS
     Indication: LOWER RESPIRATORY TRACT INFECTION
     Dosage: 600 MG, DAILY (SLOW RELEASE)
  4. DIGOXIN. [Concomitant]
     Active Substance: DIGOXIN
     Indication: ATRIAL FIBRILLATION
     Dosage: 0.25 MG, DAILY (FOR MORE THAN A YEAR)
  5. BUMETANIDE. [Concomitant]
     Active Substance: BUMETANIDE
     Dosage: 1 MG, DAILY (FOR MORE THAN A YEAR)

REACTIONS (7)
  - Neutrophilia [Fatal]
  - Liver function test abnormal [Fatal]
  - Epilepsy [Fatal]
  - Atrial fibrillation [Fatal]
  - Loss of consciousness [Fatal]
  - Drug interaction [Fatal]
  - Cardiomegaly [Fatal]
